FAERS Safety Report 4873094-7 (Version None)
Quarter: 2006Q1

REPORT INFORMATION
  Report Type: 
  Country: None (occurrence: None)
  Receive Date: 20060105
  Receipt Date: 20060105
  Transmission Date: 20060701
  Serious: Yes (Hospitalization)
  Sender: FDA-Public Use
  Company Number: None

PATIENT
  Age: 64 Year
  Sex: Female
  Weight: 60 kg

DRUGS (6)
  1. DOCETAXEL [Suspect]
     Indication: LUNG NEOPLASM MALIGNANT
     Dosage: 126
     Dates: start: 20051227
  2. CISPLATIN [Suspect]
     Indication: LUNG NEOPLASM MALIGNANT
     Dosage: 137
     Dates: start: 20051227
  3. AMBIEN [Concomitant]
  4. DEXAMETHASONE TAB [Concomitant]
  5. LIPITOR [Concomitant]
  6. EXTRA STRENGTH TYLENOL [Concomitant]

REACTIONS (3)
  - ASTHENIA [None]
  - ELECTROLYTE SUBSTITUTION THERAPY [None]
  - NAUSEA [None]
